FAERS Safety Report 7402236-4 (Version None)
Quarter: 2011Q1

REPORT INFORMATION
  Report Type: 
  Country: None (occurrence: None)
  Receive Date: 20110330
  Receipt Date: 20110317
  Transmission Date: 20110831
  Serious: Yes (Disabling)
  Sender: FDA-Public Use
  Company Number: DE-1185124

PATIENT
  Age: 77 Year
  Sex: Male
  Weight: 75 kg

DRUGS (7)
  1. OMEPRAZOLE [Concomitant]
  2. TRAVATAN 0.004 % OPHTHALMIC SOLUTION (TRAVATAN) 1 GTT [Suspect]
     Indication: INTRAOCULAR PRESSURE INCREASED
     Dosage: (OPHTHALMIC)
     Route: 047
     Dates: start: 20060825
  3. LOVASTATIN [Concomitant]
  4. CARDIOVASCULAR SYSTEM DRUGS [Concomitant]
  5. MARCUMAR [Concomitant]
  6. PENTAERYTHRITOL TETRANITRATE [Concomitant]
  7. VERAPAMIL [Concomitant]

REACTIONS (1)
  - ANOSMIA [None]
